FAERS Safety Report 9407768 (Version 2)
Quarter: 2013Q4

REPORT INFORMATION
  Report Type: Spontaneous
  Country: SE (occurrence: SE)
  Receive Date: 20130718
  Receipt Date: 20131001
  Transmission Date: 20140711
  Serious: Yes (Other)
  Sender: FDA-Public Use
  Company Number: SE-ASTRAZENECA-2013SE51893

PATIENT
  Age: 734 Month
  Sex: Male

DRUGS (12)
  1. BRILIQUE [Suspect]
     Route: 048
     Dates: start: 20130205, end: 20130605
  2. BISOPROLOL (ACTAVIS) [Concomitant]
  3. FELODIPIN (ACTAVIS) [Concomitant]
  4. CRESTOR [Concomitant]
  5. OMEPRAZOL [Concomitant]
  6. METFORMIN [Concomitant]
  7. TROMBYL [Concomitant]
  8. SPIRONOLAKTON [Concomitant]
  9. GLYTRIN [Concomitant]
     Route: 060
  10. ATACAND PLUS [Concomitant]
     Dosage: 16/12.5 MG
  11. NOVOMIX [Concomitant]
     Dosage: 30 FLEXPEN
  12. CLOPIDOGREL [Concomitant]
     Dates: start: 2010

REACTIONS (8)
  - Depressed mood [Recovering/Resolving]
  - Memory impairment [Recovering/Resolving]
  - Aggression [Unknown]
  - Amnesia [Recovering/Resolving]
  - Confusional state [Recovering/Resolving]
  - Neck pain [Not Recovered/Not Resolved]
  - Pain in extremity [Not Recovered/Not Resolved]
  - Contusion [Unknown]
